FAERS Safety Report 5930784-2 (Version None)
Quarter: 2008Q4

REPORT INFORMATION
  Report Type: 
  Country: None (occurrence: None)
  Receive Date: 20081022
  Receipt Date: 20081007
  Transmission Date: 20090506
  Serious: Yes (Death, Other)
  Sender: FDA-Public Use
  Company Number: JPI-P-002912

PATIENT
  Age: 39 Year
  Sex: Male
  Weight: 121.5 kg

DRUGS (9)
  1. XYREM [Suspect]
     Indication: CATAPLEXY
     Dosage: 4.5 GM (2.25 GM,2 IN 1 D), ORAL;  2.5 GM (1.25 GM, 2 IN 1 D), ORAL
     Route: 048
     Dates: start: 20071211, end: 20071201
  2. XYREM [Suspect]
     Indication: NARCOLEPSY
     Dosage: 4.5 GM (2.25 GM,2 IN 1 D), ORAL;  2.5 GM (1.25 GM, 2 IN 1 D), ORAL
     Route: 048
     Dates: start: 20071211, end: 20071201
  3. XYREM [Suspect]
     Indication: CATAPLEXY
     Dosage: 4.5 GM (2.25 GM,2 IN 1 D), ORAL;  2.5 GM (1.25 GM, 2 IN 1 D), ORAL
     Route: 048
     Dates: start: 20071201, end: 20071230
  4. XYREM [Suspect]
     Indication: NARCOLEPSY
     Dosage: 4.5 GM (2.25 GM,2 IN 1 D), ORAL;  2.5 GM (1.25 GM, 2 IN 1 D), ORAL
     Route: 048
     Dates: start: 20071201, end: 20071230
  5. DEXAMFETAMINE (DEXAMFETAMINE) [Suspect]
     Indication: CATAPLEXY
     Dosage: 60-100 MG/DAY
     Dates: start: 20060502, end: 20071231
  6. DEXAMFETAMINE (DEXAMFETAMINE) [Suspect]
     Indication: NARCOLEPSY
     Dosage: 60-100 MG/DAY
     Dates: start: 20060502, end: 20071231
  7. VENLAFAXINE HCL [Suspect]
     Indication: CATAPLEXY
     Dosage: 150 MG, 1 D
     Dates: start: 20070724, end: 20071231
  8. VENLAFAXINE HCL [Suspect]
     Indication: NARCOLEPSY
     Dosage: 150 MG, 1 D
     Dates: start: 20070724, end: 20071231
  9. OMEPRAZOLE [Concomitant]

REACTIONS (6)
  - CEREBRAL ATROPHY [None]
  - HAEMATEMESIS [None]
  - HALLUCINATION, AUDITORY [None]
  - LARYNGEAL DISORDER [None]
  - SUDDEN DEATH [None]
  - THERAPEUTIC AGENT TOXICITY [None]
